FAERS Safety Report 25282692 (Version 1)
Quarter: 2025Q2

REPORT INFORMATION
  Report Type: Spontaneous
  Country: DE (occurrence: DE)
  Receive Date: 20250508
  Receipt Date: 20250508
  Transmission Date: 20250717
  Serious: Yes (Hospitalization)
  Sender: MYLAN
  Company Number: DE-MYLANLABS-2025M1038605

PATIENT
  Age: 17 Year
  Sex: Female

DRUGS (72)
  1. AMLODIPINE [Suspect]
     Active Substance: AMLODIPINE BESYLATE
     Indication: Neurogenic hypertension
     Dosage: 5 MILLIGRAM; 2-0-0; QD
     Dates: start: 202210, end: 2023
  2. AMLODIPINE [Suspect]
     Active Substance: AMLODIPINE BESYLATE
     Dosage: 5 MILLIGRAM; 2-0-0; QD
     Route: 048
     Dates: start: 202210, end: 2023
  3. AMLODIPINE [Suspect]
     Active Substance: AMLODIPINE BESYLATE
     Dosage: 5 MILLIGRAM; 2-0-0; QD
     Route: 048
     Dates: start: 202210, end: 2023
  4. AMLODIPINE [Suspect]
     Active Substance: AMLODIPINE BESYLATE
     Dosage: 5 MILLIGRAM; 2-0-0; QD
     Dates: start: 202210, end: 2023
  5. METOPROLOL [Suspect]
     Active Substance: METOPROLOL
     Indication: Neurogenic hypertension
     Dosage: 50 MILLIGRAM; 1-0-1
     Dates: start: 202210, end: 2023
  6. METOPROLOL [Suspect]
     Active Substance: METOPROLOL
     Dosage: 50 MILLIGRAM; 1-0-1
     Route: 065
     Dates: start: 202210, end: 2023
  7. METOPROLOL [Suspect]
     Active Substance: METOPROLOL
     Dosage: 50 MILLIGRAM; 1-0-1
     Route: 065
     Dates: start: 202210, end: 2023
  8. METOPROLOL [Suspect]
     Active Substance: METOPROLOL
     Dosage: 50 MILLIGRAM; 1-0-1
     Dates: start: 202210, end: 2023
  9. METOPROLOL [Suspect]
     Active Substance: METOPROLOL
     Indication: Neurogenic hypertension
     Dosage: 47.5 MILLIGRAM; 1-0-0
     Dates: start: 202212, end: 2023
  10. METOPROLOL [Suspect]
     Active Substance: METOPROLOL
     Dosage: 47.5 MILLIGRAM; 1-0-0
     Dates: start: 202212, end: 2023
  11. METOPROLOL [Suspect]
     Active Substance: METOPROLOL
     Dosage: 47.5 MILLIGRAM; 1-0-0
     Route: 048
     Dates: start: 202212, end: 2023
  12. METOPROLOL [Suspect]
     Active Substance: METOPROLOL
     Dosage: 47.5 MILLIGRAM; 1-0-0
     Route: 048
     Dates: start: 202212, end: 2023
  13. METOPROLOL [Suspect]
     Active Substance: METOPROLOL
     Dosage: 47.5 MILLIGRAM; 1-0-0
     Dates: start: 202402, end: 2024
  14. METOPROLOL [Suspect]
     Active Substance: METOPROLOL
     Dosage: 47.5 MILLIGRAM; 1-0-0
     Dates: start: 202402, end: 2024
  15. METOPROLOL [Suspect]
     Active Substance: METOPROLOL
     Dosage: 47.5 MILLIGRAM; 1-0-0
     Route: 048
     Dates: start: 202402, end: 2024
  16. METOPROLOL [Suspect]
     Active Substance: METOPROLOL
     Dosage: 47.5 MILLIGRAM; 1-0-0
     Route: 048
     Dates: start: 202402, end: 2024
  17. CLONIDINE [Suspect]
     Active Substance: CLONIDINE
     Indication: Neurogenic hypertension
     Dosage: 0.15 MILLIGRAM; 1-0-1
     Dates: start: 202210, end: 202212
  18. CLONIDINE [Suspect]
     Active Substance: CLONIDINE
     Dosage: 0.15 MILLIGRAM; 1-0-1
     Dates: start: 202210, end: 202212
  19. CLONIDINE [Suspect]
     Active Substance: CLONIDINE
     Dosage: 0.15 MILLIGRAM; 1-0-1
     Route: 065
     Dates: start: 202210, end: 202212
  20. CLONIDINE [Suspect]
     Active Substance: CLONIDINE
     Dosage: 0.15 MILLIGRAM; 1-0-1
     Route: 065
     Dates: start: 202210, end: 202212
  21. CLONIDINE [Suspect]
     Active Substance: CLONIDINE
     Dosage: 0.15 MILLIGRAM; 2-0-2; BID
     Dates: start: 202212, end: 2023
  22. CLONIDINE [Suspect]
     Active Substance: CLONIDINE
     Dosage: 0.15 MILLIGRAM; 2-0-2; BID
     Dates: start: 202212, end: 2023
  23. CLONIDINE [Suspect]
     Active Substance: CLONIDINE
     Dosage: 0.15 MILLIGRAM; 2-0-2; BID
     Route: 048
     Dates: start: 202212, end: 2023
  24. CLONIDINE [Suspect]
     Active Substance: CLONIDINE
     Dosage: 0.15 MILLIGRAM; 2-0-2; BID
     Route: 048
     Dates: start: 202212, end: 2023
  25. HYDROCHLOROTHIAZIDE [Suspect]
     Active Substance: HYDROCHLOROTHIAZIDE
     Indication: Neurogenic hypertension
     Dosage: 25 MILLIGRAM; 0-1-0
     Dates: start: 202210, end: 2023
  26. HYDROCHLOROTHIAZIDE [Suspect]
     Active Substance: HYDROCHLOROTHIAZIDE
     Dosage: 25 MILLIGRAM; 0-1-0
     Route: 048
     Dates: start: 202210, end: 2023
  27. HYDROCHLOROTHIAZIDE [Suspect]
     Active Substance: HYDROCHLOROTHIAZIDE
     Dosage: 25 MILLIGRAM; 0-1-0
     Route: 048
     Dates: start: 202210, end: 2023
  28. HYDROCHLOROTHIAZIDE [Suspect]
     Active Substance: HYDROCHLOROTHIAZIDE
     Dosage: 25 MILLIGRAM; 0-1-0
     Dates: start: 202210, end: 2023
  29. RAMIPRIL [Suspect]
     Active Substance: RAMIPRIL
     Indication: Neurogenic hypertension
     Dosage: 10 MILLIGRAM; 0-0-1
     Dates: start: 202210, end: 2023
  30. RAMIPRIL [Suspect]
     Active Substance: RAMIPRIL
     Dosage: 10 MILLIGRAM; 0-0-1
     Route: 048
     Dates: start: 202210, end: 2023
  31. RAMIPRIL [Suspect]
     Active Substance: RAMIPRIL
     Dosage: 10 MILLIGRAM; 0-0-1
     Route: 048
     Dates: start: 202210, end: 2023
  32. RAMIPRIL [Suspect]
     Active Substance: RAMIPRIL
     Dosage: 10 MILLIGRAM; 0-0-1
     Dates: start: 202210, end: 2023
  33. NIFEDIPINE [Suspect]
     Active Substance: NIFEDIPINE
     Indication: Neurogenic hypertension
     Dosage: 20 MILLIGRAM; 1-1-1; TID
     Dates: start: 202210, end: 2023
  34. NIFEDIPINE [Suspect]
     Active Substance: NIFEDIPINE
     Dosage: 20 MILLIGRAM; 1-1-1; TID
     Route: 048
     Dates: start: 202210, end: 2023
  35. NIFEDIPINE [Suspect]
     Active Substance: NIFEDIPINE
     Dosage: 20 MILLIGRAM; 1-1-1; TID
     Route: 048
     Dates: start: 202210, end: 2023
  36. NIFEDIPINE [Suspect]
     Active Substance: NIFEDIPINE
     Dosage: 20 MILLIGRAM; 1-1-1; TID
     Dates: start: 202210, end: 2023
  37. CLONIDINE [Suspect]
     Active Substance: CLONIDINE
     Indication: Neurogenic hypertension
  38. CLONIDINE [Suspect]
     Active Substance: CLONIDINE
  39. CLONIDINE [Suspect]
     Active Substance: CLONIDINE
     Route: 042
  40. CLONIDINE [Suspect]
     Active Substance: CLONIDINE
     Route: 042
  41. CLONIDINE [Suspect]
     Active Substance: CLONIDINE
  42. CLONIDINE [Suspect]
     Active Substance: CLONIDINE
  43. CLONIDINE [Suspect]
     Active Substance: CLONIDINE
     Route: 042
  44. CLONIDINE [Suspect]
     Active Substance: CLONIDINE
     Route: 042
  45. DIHYDRALAZINE [Suspect]
     Active Substance: DIHYDRALAZINE
     Indication: Neurogenic hypertension
  46. DIHYDRALAZINE [Suspect]
     Active Substance: DIHYDRALAZINE
     Route: 042
  47. DIHYDRALAZINE [Suspect]
     Active Substance: DIHYDRALAZINE
     Route: 042
  48. DIHYDRALAZINE [Suspect]
     Active Substance: DIHYDRALAZINE
  49. DIHYDRALAZINE [Suspect]
     Active Substance: DIHYDRALAZINE
     Indication: Neurogenic hypertension
     Dosage: 12.5 MILLIGRAM; 1-1-1; TID
     Dates: start: 202212, end: 2023
  50. DIHYDRALAZINE [Suspect]
     Active Substance: DIHYDRALAZINE
     Dosage: 12.5 MILLIGRAM; 1-1-1; TID
     Route: 048
     Dates: start: 202212, end: 2023
  51. DIHYDRALAZINE [Suspect]
     Active Substance: DIHYDRALAZINE
     Dosage: 12.5 MILLIGRAM; 1-1-1; TID
     Route: 048
     Dates: start: 202212, end: 2023
  52. DIHYDRALAZINE [Suspect]
     Active Substance: DIHYDRALAZINE
     Dosage: 12.5 MILLIGRAM; 1-1-1; TID
     Dates: start: 202212, end: 2023
  53. MINOXIDIL [Suspect]
     Active Substance: MINOXIDIL
     Indication: Neurogenic hypertension
     Dosage: 5 MILLIGRAM, BID; 1-0-1
     Dates: start: 202212, end: 2023
  54. MINOXIDIL [Suspect]
     Active Substance: MINOXIDIL
     Dosage: 5 MILLIGRAM, BID; 1-0-1
     Dates: start: 202212, end: 2023
  55. MINOXIDIL [Suspect]
     Active Substance: MINOXIDIL
     Dosage: 5 MILLIGRAM, BID; 1-0-1
     Route: 048
     Dates: start: 202212, end: 2023
  56. MINOXIDIL [Suspect]
     Active Substance: MINOXIDIL
     Dosage: 5 MILLIGRAM, BID; 1-0-1
     Route: 048
     Dates: start: 202212, end: 2023
  57. MINOXIDIL [Suspect]
     Active Substance: MINOXIDIL
     Dosage: 5 MILLIGRAM, BID; 1-0-1
     Dates: start: 202402, end: 2024
  58. MINOXIDIL [Suspect]
     Active Substance: MINOXIDIL
     Dosage: 5 MILLIGRAM, BID; 1-0-1
     Dates: start: 202402, end: 2024
  59. MINOXIDIL [Suspect]
     Active Substance: MINOXIDIL
     Dosage: 5 MILLIGRAM, BID; 1-0-1
     Route: 048
     Dates: start: 202402, end: 2024
  60. MINOXIDIL [Suspect]
     Active Substance: MINOXIDIL
     Dosage: 5 MILLIGRAM, BID; 1-0-1
     Route: 048
     Dates: start: 202402, end: 2024
  61. SPIRONOLACTONE [Suspect]
     Active Substance: SPIRONOLACTONE
     Indication: Neurogenic hypertension
     Dosage: 25 MILLIGRAM, BID; 1-0-1
     Dates: start: 202212, end: 2023
  62. SPIRONOLACTONE [Suspect]
     Active Substance: SPIRONOLACTONE
     Dosage: 25 MILLIGRAM, BID; 1-0-1
     Route: 048
     Dates: start: 202212, end: 2023
  63. SPIRONOLACTONE [Suspect]
     Active Substance: SPIRONOLACTONE
     Dosage: 25 MILLIGRAM, BID; 1-0-1
     Route: 048
     Dates: start: 202212, end: 2023
  64. SPIRONOLACTONE [Suspect]
     Active Substance: SPIRONOLACTONE
     Dosage: 25 MILLIGRAM, BID; 1-0-1
     Dates: start: 202212, end: 2023
  65. URAPIDIL [Suspect]
     Active Substance: URAPIDIL
     Indication: Neurogenic hypertension
  66. URAPIDIL [Suspect]
     Active Substance: URAPIDIL
     Route: 042
  67. URAPIDIL [Suspect]
     Active Substance: URAPIDIL
     Route: 042
  68. URAPIDIL [Suspect]
     Active Substance: URAPIDIL
  69. ENALAPRIL [Suspect]
     Active Substance: ENALAPRIL
     Indication: Neurogenic hypertension
     Dosage: 10 MILLIGRAM, BID; 1-0-1
     Dates: start: 202402, end: 2024
  70. ENALAPRIL [Suspect]
     Active Substance: ENALAPRIL
     Dosage: 10 MILLIGRAM, BID; 1-0-1
     Route: 048
     Dates: start: 202402, end: 2024
  71. ENALAPRIL [Suspect]
     Active Substance: ENALAPRIL
     Dosage: 10 MILLIGRAM, BID; 1-0-1
     Route: 048
     Dates: start: 202402, end: 2024
  72. ENALAPRIL [Suspect]
     Active Substance: ENALAPRIL
     Dosage: 10 MILLIGRAM, BID; 1-0-1
     Dates: start: 202402, end: 2024

REACTIONS (1)
  - Drug ineffective [Unknown]
